FAERS Safety Report 6150827-3 (Version None)
Quarter: 2009Q2

REPORT INFORMATION
  Report Type: 
  Country: None (occurrence: None)
  Receive Date: 20090409
  Receipt Date: 20090401
  Transmission Date: 20091009
  Serious: Yes (Other)
  Sender: FDA-Public Use
  Company Number: GR-GENENTECH-280612

PATIENT

DRUGS (4)
  1. LUCENTIS [Suspect]
     Indication: RETINAL DISORDER
     Dosage: UNK
     Route: 031
  2. BEVACIZUMAB [Suspect]
     Indication: RETINAL DISORDER
     Dosage: UNK
     Route: 031
  3. TOPICAL ANTIBIOTICS (UNK INGREDIENTS) [Concomitant]
     Indication: POST PROCEDURAL COMPLICATION
  4. ASPIRIN [Concomitant]
     Indication: DRUG USE FOR UNKNOWN INDICATION

REACTIONS (1)
  - IRIDOCYCLITIS [None]
